FAERS Safety Report 15395677 (Version 1)
Quarter: 2018Q3

REPORT INFORMATION
  Report Type: Spontaneous
  Country: JP (occurrence: JP)
  Receive Date: 20180918
  Receipt Date: 20180918
  Transmission Date: 20181010
  Serious: Yes (Hospitalization)
  Sender: FDA-Public Use
  Company Number: JP-JNJFOC-20180905271

PATIENT
  Age: 84 Year
  Sex: Male

DRUGS (1)
  1. XARELTO [Suspect]
     Active Substance: RIVAROXABAN
     Indication: ISCHAEMIC STROKE
     Route: 048

REACTIONS (8)
  - Haemorrhagic infarction [Unknown]
  - Subarachnoid haemorrhage [Unknown]
  - Hemiparesis [Unknown]
  - Brain oedema [Unknown]
  - Altered state of consciousness [Unknown]
  - Brain midline shift [Unknown]
  - Cerebral haemorrhage [Unknown]
  - Haematoma [Unknown]
